FAERS Safety Report 6986555-1 (Version None)
Quarter: 2010Q3

REPORT INFORMATION
  Report Type: 
  Country: None (occurrence: None)
  Receive Date: 20100915
  Receipt Date: 20090713
  Transmission Date: 20110219
  Serious: No
  Sender: FDA-Public Use
  Company Number: US-WYE-H10118409

PATIENT
  Sex: Male
  Weight: 79.45 kg

DRUGS (2)
  1. PRISTIQ [Suspect]
     Indication: BIPOLAR DISORDER
     Route: 048
     Dates: start: 20090601
  2. LITHIUM CARBONATE [Concomitant]

REACTIONS (5)
  - ALOPECIA [None]
  - CONSTIPATION [None]
  - DYSKINESIA [None]
  - HAIR GROWTH ABNORMAL [None]
  - TREMOR [None]
